FAERS Safety Report 9688250 (Version 2)
Quarter: 2013Q4

REPORT INFORMATION
  Report Type: Spontaneous
  Country: US (occurrence: US)
  Receive Date: 20131114
  Receipt Date: 20131114
  Transmission Date: 20140711
  Serious: Yes (Other)
  Sender: FDA-Public Use
  Company Number: US-NOVOPROD-391002

PATIENT
  Age: 73 Year
  Sex: Female
  Weight: 90 kg

DRUGS (8)
  1. VICTOZA [Suspect]
     Indication: TYPE 2 DIABETES MELLITUS
     Dosage: 1.8 MG, QD
     Route: 058
     Dates: start: 20130626, end: 20130806
  2. VICTOZA [Suspect]
     Dosage: 1.2 MG, QD
     Route: 058
     Dates: start: 20130807, end: 201308
  3. VICTOZA [Suspect]
     Dosage: UNK MG, UNK
     Route: 058
     Dates: start: 20130904, end: 20131023
  4. LANTUS [Concomitant]
     Indication: TYPE 2 DIABETES MELLITUS
     Dosage: 30 U, QD
     Route: 058
     Dates: start: 20130626, end: 20130725
  5. LANTUS [Concomitant]
     Dosage: 6 U, QD
     Route: 058
     Dates: start: 20130807, end: 20130905
  6. LANTUS [Concomitant]
     Dosage: 12 U, QD
     Route: 058
     Dates: start: 20130906
  7. TUMS                               /00193601/ [Concomitant]
     Indication: ABDOMINAL PAIN UPPER
     Route: 048
  8. NOVOLOG [Concomitant]
     Indication: PRODUCT USED FOR UNKNOWN INDICATION
     Dosage: UNITS UNK, AT DINNER TIME
     Route: 058
     Dates: start: 20131024

REACTIONS (6)
  - Malignant neoplasm of unknown primary site [Unknown]
  - Pancreatitis [Unknown]
  - Benign neoplasm of thyroid gland [Unknown]
  - Headache [Unknown]
  - Dyspnoea [Unknown]
  - Asthenia [Unknown]
